FAERS Safety Report 4503249-2 (Version None)
Quarter: 2004Q4

REPORT INFORMATION
  Report Type: 
  Country: None (occurrence: None)
  Receive Date: 20041112
  Receipt Date: 20041105
  Transmission Date: 20050328
  Serious: Yes (Hospitalization)
  Sender: FDA-Public Use
  Company Number: 2004241381SE

PATIENT
  Age: 61 Year
  Sex: Female

DRUGS (2)
  1. CELEBREX [Suspect]
     Dosage: SEE IMAGE
     Route: 048
     Dates: end: 20041001
  2. CELEBREX [Suspect]
     Dosage: SEE IMAGE
     Route: 048
     Dates: start: 20000101

REACTIONS (12)
  - CONFUSIONAL STATE [None]
  - DIZZINESS [None]
  - EXPRESSIVE LANGUAGE DISORDER [None]
  - FATIGUE [None]
  - HEADACHE [None]
  - HYPERHIDROSIS [None]
  - HYPERTENSION [None]
  - MEDICATION ERROR [None]
  - MEMORY IMPAIRMENT [None]
  - NIGHTMARE [None]
  - PAROSMIA [None]
  - PUPIL FIXED [None]
